FAERS Safety Report 4670025-X (Version None)
Quarter: 2005Q2

REPORT INFORMATION
  Report Type: 
  Country: None (occurrence: None)
  Receive Date: 20050523
  Receipt Date: 20050509
  Transmission Date: 20051028
  Serious: Yes (Hospitalization)
  Sender: FDA-Public Use
  Company Number: 26597

PATIENT
  Age: 45 Year
  Sex: Male
  Weight: 70.5 kg

DRUGS (1)
  1. ALDARA [Suspect]
     Indication: ACTINIC KERATOSIS
     Dosage: 1 SACHET, 2 IN 1 WEEK(S), TOPICAL
     Route: 061
     Dates: start: 20041208, end: 20050124

REACTIONS (2)
  - CONVULSION [None]
  - DIZZINESS [None]
